FAERS Safety Report 13377841 (Version 2)
Quarter: 2017Q2

REPORT INFORMATION
  Report Type: Spontaneous
  Country: US (occurrence: US)
  Receive Date: 20170328
  Receipt Date: 20170413
  Transmission Date: 20170830
  Serious: Yes (Other)
  Sender: FDA-Public Use
  Company Number: US-009507513-1703USA005611

PATIENT
  Age: 78 Year
  Sex: Female

DRUGS (9)
  1. TRAZODONE HYDROCHLORIDE. [Concomitant]
     Active Substance: TRAZODONE HYDROCHLORIDE
     Dosage: UNK
  2. ATENOLOL. [Concomitant]
     Active Substance: ATENOLOL
     Dosage: UNK
  3. CARBAMAZEPINE. [Concomitant]
     Active Substance: CARBAMAZEPINE
     Dosage: UNK
  4. PRINIVIL [Concomitant]
     Active Substance: LISINOPRIL
     Dosage: UNK
     Route: 048
  5. METRONIDAZOLE. [Concomitant]
     Active Substance: METRONIDAZOLE
     Dosage: UNK
     Route: 061
  6. ASPIRIN. [Concomitant]
     Active Substance: ASPIRIN
     Dosage: UNK
     Route: 048
  7. ZOCOR [Concomitant]
     Active Substance: SIMVASTATIN
     Dosage: UNK
     Route: 048
  8. KEYTRUDA [Suspect]
     Active Substance: PEMBROLIZUMAB
     Indication: METASTATIC MALIGNANT MELANOMA
     Dosage: 143.5 MG, EVERY 3 WEEKS
     Route: 042
     Dates: start: 20160524
  9. DOXYCYCLINE. [Concomitant]
     Active Substance: DOXYCYCLINE
     Dosage: UNK

REACTIONS (4)
  - C-reactive protein increased [Recovering/Resolving]
  - Knee arthroplasty [Recovering/Resolving]
  - Joint effusion [Recovering/Resolving]
  - White blood cell count abnormal [Recovering/Resolving]

NARRATIVE: CASE EVENT DATE: 20160803
